FAERS Safety Report 6483013-8 (Version None)
Quarter: 2009Q4

REPORT INFORMATION
  Report Type: 
  Country: None (occurrence: None)
  Receive Date: 20091208
  Receipt Date: 20091208
  Transmission Date: 20100525
  Serious: Yes (Other)
  Sender: FDA-Public Use
  Company Number: None

PATIENT
  Age: 26 Year
  Sex: Female
  Weight: 53.5244 kg

DRUGS (1)
  1. ORTHO TRI-CYCLEN LO [Suspect]
     Indication: ORAL CONTRACEPTION
     Dosage: ONCE TABLET QDAY ORAL
     Route: 048
     Dates: start: 20090201

REACTIONS (1)
  - URINE HUMAN CHORIONIC GONADOTROPIN POSITIVE [None]
